FAERS Safety Report 10215282 (Version 2)
Quarter: 2014Q2

REPORT INFORMATION
  Report Type: Report from Study
  Country: CA (occurrence: CA)
  Receive Date: 20140603
  Receipt Date: 20140613
  Transmission Date: 20141212
  Serious: Yes (Hospitalization, Other)
  Sender: FDA-Public Use
  Company Number: CA-ABBVIE-14P-028-1241597-00

PATIENT
  Sex: Female
  Weight: 47.67 kg

DRUGS (3)
  1. HUMIRA [Suspect]
     Indication: CROHN^S DISEASE
     Route: 058
     Dates: start: 20100112
  2. HUMIRA [Suspect]
     Route: 058
     Dates: start: 201104
  3. PURINETHOL [Concomitant]
     Indication: CROHN^S DISEASE

REACTIONS (11)
  - Stress [Recovered/Resolved]
  - Pain [Not Recovered/Not Resolved]
  - Crohn^s disease [Recovered/Resolved]
  - Fatigue [Recovered/Resolved]
  - Intestinal operation [Recovered/Resolved]
  - Drug ineffective [Unknown]
  - Crohn^s disease [Recovered/Resolved]
  - Oral herpes [Recovered/Resolved]
  - Inappropriate schedule of drug administration [Unknown]
  - Nasopharyngitis [Unknown]
  - Inappropriate schedule of drug administration [Unknown]
